FAERS Safety Report 14392936 (Version 1)
Quarter: 2018Q1

REPORT INFORMATION
  Report Type: Spontaneous
  Country: SE (occurrence: SE)
  Receive Date: 20180116
  Receipt Date: 20180116
  Transmission Date: 20180509
  Serious: Yes (Other)
  Sender: FDA-Public Use
  Company Number: SE-GLAXOSMITHKLINE-SE2017GSK194733

PATIENT
  Age: 4 Year
  Sex: Female
  Weight: 13.7 kg

DRUGS (4)
  1. PULMICORT TURBUHALER [Concomitant]
     Active Substance: BUDESONIDE
     Indication: PRODUCT USED FOR UNKNOWN INDICATION
     Dosage: UNK
     Dates: end: 20171122
  2. CRIZOTINIB [Suspect]
     Active Substance: CRIZOTINIB
     Dosage: UNK
     Dates: start: 20171207
  3. VENTOLINE [Suspect]
     Active Substance: ALBUTEROL
     Indication: RESPIRATORY TRACT INFECTION
     Dosage: 1 MG/ML, UNK
     Dates: start: 20171017, end: 20171122
  4. CRIZOTINIB [Suspect]
     Active Substance: CRIZOTINIB
     Indication: CONGENITAL NEOPLASM
     Dosage: 165 MG, BID
     Dates: start: 20170817, end: 20171127

REACTIONS (5)
  - Heart rate increased [Recovered/Resolved]
  - Pyrexia [Unknown]
  - Bradycardia [Recovered/Resolved]
  - Human rhinovirus test positive [Unknown]
  - Pseudomonas infection [Unknown]

NARRATIVE: CASE EVENT DATE: 201711
